FAERS Safety Report 17858582 (Version 2)
Quarter: 2020Q2

REPORT INFORMATION
  Report Type: Report from Study
  Country: None (occurrence: US)
  Receive Date: 20200604
  Receipt Date: 20200605
  Transmission Date: 20200714
  Serious: Yes (Other)
  Sender: FDA-Public Use
  Company Number: US-US WORLDMEDS, LLC-USW201911-002098

PATIENT
  Age: 82 Year
  Sex: Male
  Weight: 63.5 kg

DRUGS (5)
  1. NORTHERA [Concomitant]
     Active Substance: DROXIDOPA
     Dosage: UNKNOWN
  2. CARBIDOPA-LEVODOPA [Concomitant]
     Active Substance: CARBIDOPA\LEVODOPA
  3. CARBIDOPA-LEVODOPA [Concomitant]
     Active Substance: CARBIDOPA\LEVODOPA
  4. APOKYN [Suspect]
     Active Substance: APOMORPHINE HYDROCHLORIDE
     Indication: PARKINSON^S DISEASE
     Route: 058
     Dates: start: 20191030
  5. APOKYN [Suspect]
     Active Substance: APOMORPHINE HYDROCHLORIDE
     Route: 058

REACTIONS (4)
  - Parkinson^s disease [Unknown]
  - Somnolence [Recovered/Resolved]
  - Blood pressure decreased [Recovered/Resolved]
  - Yawning [Recovered/Resolved]

NARRATIVE: CASE EVENT DATE: 20191030
